FAERS Safety Report 22028000 (Version 1)
Quarter: 2023Q1

REPORT INFORMATION
  Report Type: Spontaneous
  Country: IN (occurrence: IN)
  Receive Date: 20230223
  Receipt Date: 20230223
  Transmission Date: 20230417
  Serious: Yes (Other)
  Sender: FDA-Public Use
  Company Number: IN-GLAXOSMITHKLINE-IN2023APC027169

PATIENT

DRUGS (5)
  1. ACYCLOVIR [Suspect]
     Active Substance: ACYCLOVIR
     Indication: Adenoviral encephalitis
     Dosage: 750 MG EVERY 8 HOURLY
     Route: 042
  2. PHENYTOIN SODIUM [Concomitant]
     Active Substance: PHENYTOIN SODIUM
     Indication: Generalised tonic-clonic seizure
     Dosage: 20 MG/KG OVER 1 H
     Route: 042
  3. CEFTRIAXONE [Concomitant]
     Active Substance: CEFTRIAXONE
     Indication: Adenoviral encephalitis
     Dosage: 2 G, 12 HOURLY
     Route: 042
  4. DEXMEDETOMIDINE [Concomitant]
     Active Substance: DEXMEDETOMIDINE
     Indication: Product used for unknown indication
     Dosage: 0.3 ?G/KG/H
     Route: 042
  5. DEXMEDETOMIDINE [Concomitant]
     Active Substance: DEXMEDETOMIDINE
     Dosage: TAPERED DOSE

REACTIONS (5)
  - Acute kidney injury [Recovering/Resolving]
  - Sinus tachycardia [Recovering/Resolving]
  - Viral myocarditis [Recovering/Resolving]
  - Azotaemia [Recovering/Resolving]
  - Proteinuria [Recovering/Resolving]
